FAERS Safety Report 18502810 (Version 1)
Quarter: 2020Q4

REPORT INFORMATION
  Report Type: Spontaneous
  Country: AU (occurrence: AU)
  Receive Date: 20201113
  Receipt Date: 20201113
  Transmission Date: 20210114
  Serious: Yes (Other)
  Sender: FDA-Public Use
  Company Number: AU-PFIZER INC-2020443842

PATIENT
  Age: 22 Year
  Sex: Male

DRUGS (17)
  1. DIAZEPAM. [Concomitant]
     Active Substance: DIAZEPAM
     Dosage: 10 MG
     Route: 048
  2. LIGNOCAINE HCL [Concomitant]
     Active Substance: LIDOCAINE HYDROCHLORIDE
     Dosage: 2 ML
  3. SALBUTAMOL [Concomitant]
     Active Substance: ALBUTEROL
     Indication: ASTHMA
     Dosage: UNK
     Route: 042
  4. THEOPHYLLINE [Concomitant]
     Active Substance: THEOPHYLLINE ANHYDROUS
     Indication: ASTHMA
     Dosage: UNK
     Route: 048
  5. FENTANYL. [Concomitant]
     Active Substance: FENTANYL
     Dosage: 130 UG
     Route: 042
  6. SALBUTAMOL [Concomitant]
     Active Substance: ALBUTEROL
     Indication: ASTHMA
     Dosage: UNK (INHALATION)
     Route: 055
  7. PAPAVERETUM [Concomitant]
     Dosage: 20 MG
     Route: 030
  8. BECOTIDE [Concomitant]
     Active Substance: BECLOMETHASONE DIPROPIONATE
     Dosage: UNK (TWO PUFFS)
  9. BUPIVACAINE. [Suspect]
     Active Substance: BUPIVACAINE
     Dosage: 2 ML
     Route: 008
  10. BUPIVACAINE. [Suspect]
     Active Substance: BUPIVACAINE
     Dosage: 13 ML
     Route: 008
  11. BUPIVACAINE. [Suspect]
     Active Substance: BUPIVACAINE
     Dosage: 5 ML
     Route: 008
  12. SCOPOLAMINE AMINOXIDE [Concomitant]
     Active Substance: SCOPOLAMINE N-OXIDE
     Dosage: 0.4 MG
     Route: 030
  13. HALOTHANE. [Concomitant]
     Active Substance: HALOTHANE
     Indication: ANAESTHESIA
     Dosage: UNK
  14. DROPERIDOL. [Concomitant]
     Active Substance: DROPERIDOL
     Dosage: 2 MG
  15. SALBUTAMOL [Concomitant]
     Active Substance: ALBUTEROL
     Dosage: UNK (TWO PUFFS)
  16. THIOPENTONE SODIUM [Concomitant]
     Active Substance: THIOPENTAL SODIUM
     Indication: ANAESTHESIA
     Dosage: UNK
  17. NITROUS OXIDE. [Concomitant]
     Active Substance: NITROUS OXIDE
     Indication: ANAESTHESIA
     Dosage: UNK

REACTIONS (5)
  - Atrioventricular block [Unknown]
  - Arrhythmia [Unknown]
  - Ventricular tachycardia [Unknown]
  - Cardiac fibrillation [Unknown]
  - Pulseless electrical activity [Unknown]
